FAERS Safety Report 14494864 (Version 2)
Quarter: 2018Q1

REPORT INFORMATION
  Report Type: Spontaneous
  Country: None (occurrence: US)
  Receive Date: 20180206
  Receipt Date: 20180209
  Transmission Date: 20180509
  Serious: Yes (Hospitalization)
  Sender: FDA-Public Use
  Company Number: US-ALLERGAN-1805504US

PATIENT
  Sex: Female

DRUGS (2)
  1. BOTOX [Suspect]
     Active Substance: ONABOTULINUMTOXINA
     Dosage: UNK, SINGLE
     Route: 030
     Dates: start: 20180116, end: 20180116
  2. BOTOX [Suspect]
     Active Substance: ONABOTULINUMTOXINA
     Indication: MIGRAINE
     Dosage: UNK UNK, SINGLE
     Route: 030
     Dates: start: 20170623, end: 20170623

REACTIONS (21)
  - Chest pain [Not Recovered/Not Resolved]
  - Speech disorder [Not Recovered/Not Resolved]
  - Migraine [Not Recovered/Not Resolved]
  - Syncope [Unknown]
  - Anxiety [Not Recovered/Not Resolved]
  - Facial paralysis [Unknown]
  - Fatigue [Unknown]
  - Urinary retention [Not Recovered/Not Resolved]
  - Neck pain [Unknown]
  - Loss of consciousness [Recovered/Resolved]
  - Heart rate increased [Unknown]
  - Urinary tract infection [Recovered/Resolved]
  - Paralysis [Unknown]
  - Dyspnoea [Not Recovered/Not Resolved]
  - Nausea [Unknown]
  - Muscular weakness [Not Recovered/Not Resolved]
  - Bladder dysfunction [Unknown]
  - Injection site mass [Recovered/Resolved]
  - Headache [Unknown]
  - Pyrexia [Unknown]
  - Blood pressure increased [Unknown]

NARRATIVE: CASE EVENT DATE: 20170623
